FAERS Safety Report 14774541 (Version 1)
Quarter: 2018Q2

REPORT INFORMATION
  Report Type: Spontaneous
  Country: ES (occurrence: ES)
  Receive Date: 20180418
  Receipt Date: 20180418
  Transmission Date: 20180711
  Serious: Yes (Death)
  Sender: FDA-Public Use
  Company Number: ES-LPDUSPRD-20180579

PATIENT
  Age: 52 Year
  Sex: Female

DRUGS (6)
  1. FENTANILO [Concomitant]
     Active Substance: FENTANYL
     Dosage: 25 MICROGRAM/H
     Route: 065
  2. HIERRO SULFATO [Concomitant]
     Dosage: 256 MG
     Route: 048
     Dates: start: 20170518
  3. METFORMIN HYDOCHLORIDE-EMPAGLIFLOZIN [Concomitant]
     Dosage: UNKNOWN
     Route: 065
  4. FENOFIBRATO [Concomitant]
     Active Substance: FENOFIBRATE
     Dosage: UNKNOWN
     Route: 065
  5. ENALAPRIL [Concomitant]
     Active Substance: ENALAPRIL
     Dosage: UNKNOWN
     Route: 065
  6. FERINJECT [Suspect]
     Active Substance: FERRIC CARBOXYMALTOSE
     Dosage: 1GM,1 TOTAL
     Route: 042
     Dates: start: 20180307, end: 20180307

REACTIONS (1)
  - Cardio-respiratory arrest [Fatal]

NARRATIVE: CASE EVENT DATE: 20180307
